FAERS Safety Report 17885265 (Version 1)
Quarter: 2020Q2

REPORT INFORMATION
  Report Type: Report from Study
  Country: IT (occurrence: IT)
  Receive Date: 20200611
  Receipt Date: 20200611
  Transmission Date: 20200714
  Serious: Yes (Death, Other)
  Sender: FDA-Public Use
  Company Number: IT-BRISTOL-MYERS SQUIBB COMPANY-BMS-2020-044857

PATIENT
  Age: 90 Year
  Sex: Female

DRUGS (5)
  1. APIXABAN [Suspect]
     Active Substance: APIXABAN
     Indication: CEREBROVASCULAR ACCIDENT PROPHYLAXIS
     Dosage: 1 DOSAGE FORM, PER DAY
     Route: 048
  2. DILZENE [Concomitant]
     Active Substance: DILTIAZEM HYDROCHLORIDE
     Indication: ATRIAL FIBRILLATION
     Dosage: 1 DOSAGE FORM, PER DAY
     Route: 048
  3. LASIX [Concomitant]
     Active Substance: FUROSEMIDE
     Indication: HYPERTENSION
     Dosage: 1 DOSAGE FORM
     Route: 048
  4. VASEXTEN [Concomitant]
     Active Substance: BARNIDIPINE HYDROCHLORIDE
     Indication: HYPERTENSION
     Dosage: 1 DOSAGE FORM
     Route: 048
  5. LANSOX [Concomitant]
     Active Substance: LANSOPRAZOLE
     Indication: PROPHYLAXIS
     Dosage: 1 DOSAGE FORM
     Route: 048

REACTIONS (3)
  - Haematemesis [Fatal]
  - Gastrointestinal haemorrhage [Fatal]
  - Abdominal pain upper [Fatal]

NARRATIVE: CASE EVENT DATE: 20200411
